FAERS Safety Report 15737426 (Version 1)
Quarter: 2018Q4

REPORT INFORMATION
  Report Type: Spontaneous
  Country: NL (occurrence: NL)
  Receive Date: 20181218
  Receipt Date: 20181218
  Transmission Date: 20190205
  Serious: Yes (Hospitalization)
  Sender: FDA-Public Use
  Company Number: NL-SUN PHARMACEUTICAL INDUSTRIES LTD-2018RR-193680

PATIENT
  Age: 64 Year
  Sex: Male
  Weight: 86 kg

DRUGS (1)
  1. TAMSULOSINE 0.4 RANBAXY CAPSULE MET VERLENGDE AFGIFTE 0.4 MG [Suspect]
     Active Substance: TAMSULOSIN
     Indication: URINARY TRACT DISCOMFORT
     Dosage: 1 DOSAGE FORM, DAILY
     Route: 050
     Dates: start: 20181026, end: 20181112

REACTIONS (4)
  - Dizziness [Recovering/Resolving]
  - Loss of consciousness [Recovering/Resolving]
  - Diarrhoea [Recovering/Resolving]
  - Balance disorder [Recovering/Resolving]

NARRATIVE: CASE EVENT DATE: 20181028
